FAERS Safety Report 9302905 (Version 6)
Quarter: 2014Q1

REPORT INFORMATION
  Report Type: Report from Study
  Country: DE (occurrence: DE)
  Receive Date: 20130522
  Receipt Date: 20140203
  Transmission Date: 20141002
  Serious: Yes (Hospitalization)
  Sender: FDA-Public Use
  Company Number: DE-JNJFOC-20130508165

PATIENT
  Age: 59 Year
  Sex: Female
  Weight: 70.5 kg

DRUGS (9)
  1. GOLIMUMAB [Suspect]
     Route: 058
  2. GOLIMUMAB [Suspect]
     Indication: COLITIS ULCERATIVE
     Route: 058
     Dates: start: 20081120, end: 20121211
  3. HEPARIN [Suspect]
     Indication: PRODUCT USED FOR UNKNOWN INDICATION
  4. CLOPIDOGREL [Suspect]
     Indication: PRODUCT USED FOR UNKNOWN INDICATION
  5. ASPIRIN [Suspect]
     Indication: PRODUCT USED FOR UNKNOWN INDICATION
  6. DIPENTUM [Concomitant]
     Route: 048
     Dates: start: 20080514
  7. SIMVASTATIN [Concomitant]
     Route: 048
     Dates: start: 20080429
  8. DICLAC DUO [Concomitant]
     Route: 048
     Dates: start: 20081002
  9. LIDOCAINE [Concomitant]
     Route: 048
     Dates: start: 20121106

REACTIONS (1)
  - Colitis ulcerative [Not Recovered/Not Resolved]
